FAERS Safety Report 14673772 (Version 2)
Quarter: 2018Q1

REPORT INFORMATION
  Report Type: Spontaneous
  Country: US (occurrence: US)
  Receive Date: 20180323
  Receipt Date: 20180327
  Transmission Date: 20180509
  Serious: Yes (Hospitalization, Other)
  Sender: FDA-Public Use
  Company Number: US-PFIZER INC-2018120438

PATIENT
  Age: 75 Year
  Sex: Female
  Weight: 70.31 kg

DRUGS (2)
  1. XELJANZ XR [Suspect]
     Active Substance: TOFACITINIB CITRATE
     Indication: RHEUMATOID ARTHRITIS
     Dosage: UNK, 2X/DAY
     Route: 048
     Dates: end: 20171210
  2. PROZAC [Concomitant]
     Active Substance: FLUOXETINE HYDROCHLORIDE
     Indication: DEPRESSION
     Dosage: 20 MG, 1X/DAY
     Route: 048

REACTIONS (13)
  - Swollen tongue [Recovered/Resolved]
  - Nodule [Unknown]
  - Pharyngeal mass [Unknown]
  - Fall [Unknown]
  - Intentional product misuse [Unknown]
  - Swelling [Recovered/Resolved]
  - Pharyngitis [Unknown]
  - Haemorrhage [Unknown]
  - Skin lesion [Recovering/Resolving]
  - Gastrooesophageal reflux disease [Unknown]
  - Off label use [Unknown]
  - Pharyngeal oedema [Recovered/Resolved]
  - Abdominal discomfort [Unknown]

NARRATIVE: CASE EVENT DATE: 201711
